FAERS Safety Report 14675432 (Version 1)
Quarter: 2018Q1

REPORT INFORMATION
  Report Type: Spontaneous
  Country: JP (occurrence: JP)
  Receive Date: 20180323
  Receipt Date: 20180323
  Transmission Date: 20180509
  Serious: Yes (Other)
  Sender: FDA-Public Use
  Company Number: JP-ASTRAZENECA-2018SE35264

PATIENT
  Age: 17 Year
  Sex: Male

DRUGS (4)
  1. REPATHA [Suspect]
     Active Substance: EVOLOCUMAB
     Indication: TYPE IIA HYPERLIPIDAEMIA
     Dosage: 420.0MG UNKNOWN
     Route: 058
     Dates: start: 20170824
  2. CHOLEBINE [Concomitant]
     Active Substance: COLESTILAN CHLORIDE
  3. ZETIA [Concomitant]
     Active Substance: EZETIMIBE
     Dates: start: 20170825
  4. CRESTOR [Suspect]
     Active Substance: ROSUVASTATIN CALCIUM
     Dosage: 20.0MG UNKNOWN
     Route: 048
     Dates: start: 20170825

REACTIONS (2)
  - Takayasu^s arteritis [Unknown]
  - Blood creatine phosphokinase [Unknown]

NARRATIVE: CASE EVENT DATE: 20171017
